FAERS Safety Report 7125828-9 (Version None)
Quarter: 2010Q4

REPORT INFORMATION
  Report Type: 
  Country: None (occurrence: None)
  Receive Date: 20101129
  Receipt Date: 20041110
  Transmission Date: 20110411
  Serious: Yes (Other)
  Sender: FDA-Public Use
  Company Number: AU-ROCHE-742109

PATIENT

DRUGS (3)
  1. CELLCEPT [Suspect]
     Route: 065
  2. SIROLIMUS [Concomitant]
  3. CYCLOSPORINE [Concomitant]

REACTIONS (2)
  - MOUTH ULCERATION [None]
  - NERVOUS SYSTEM DISORDER [None]
